FAERS Safety Report 24814874 (Version 3)
Quarter: 2025Q1

REPORT INFORMATION
  Report Type: Spontaneous
  Country: ID (occurrence: ID)
  Receive Date: 20250107
  Receipt Date: 20250117
  Transmission Date: 20250408
  Serious: Yes (Hospitalization)
  Sender: MYLAN
  Company Number: ID-MYLANLABS-2025M1000772

PATIENT
  Age: 28 Year
  Sex: Female

DRUGS (8)
  1. GABAPENTIN [Suspect]
     Active Substance: GABAPENTIN
     Indication: Trigeminal neuralgia
     Dosage: 100 MILLIGRAM, QD (100 MG Q24H)
     Route: 065
     Dates: start: 202401, end: 202402
  2. GABAPENTIN [Suspect]
     Active Substance: GABAPENTIN
     Route: 065
     Dates: start: 2024, end: 2024
  3. GABAPENTIN [Suspect]
     Active Substance: GABAPENTIN
     Route: 065
     Dates: start: 2024, end: 202404
  4. CARBAMAZEPINE [Suspect]
     Active Substance: CARBAMAZEPINE
     Indication: Trigeminal neuralgia
     Dosage: 200 MILLIGRAM, BID (200 MG 12H)
     Route: 048
     Dates: start: 202403, end: 202404
  5. METHYLPREDNISOLONE [Suspect]
     Active Substance: METHYLPREDNISOLONE
     Indication: Trigeminal neuralgia
     Dosage: 4 MILLIGRAM, Q8H (4 MG Q8H FOR 5 DAYS)
     Route: 042
     Dates: start: 202404
  6. METHYLPREDNISOLONE [Suspect]
     Active Substance: METHYLPREDNISOLONE
     Indication: Stevens-Johnson syndrome
  7. ACETAMINOPHEN [Suspect]
     Active Substance: ACETAMINOPHEN
     Indication: Trigeminal neuralgia
     Route: 065
     Dates: start: 202402
  8. FLUOXETINE [Suspect]
     Active Substance: FLUOXETINE HYDROCHLORIDE
     Indication: Trigeminal neuralgia
     Dosage: 10 MILLIGRAM, PM  (24 HOURS NIGHT)
     Route: 048
     Dates: start: 202404

REACTIONS (3)
  - Stevens-Johnson syndrome [Unknown]
  - Maternal exposure during pregnancy [Unknown]
  - Drug ineffective [Unknown]

NARRATIVE: CASE EVENT DATE: 20240101
